FAERS Safety Report 6117128-0 (Version None)
Quarter: 2009Q1

REPORT INFORMATION
  Report Type: 
  Country: None (occurrence: None)
  Receive Date: 20090314
  Receipt Date: 20090212
  Transmission Date: 20090719
  Serious: No
  Sender: FDA-Public Use
  Company Number: US-ABBOTT-09P-163-0496138-00

PATIENT
  Sex: Female
  Weight: 94.432 kg

DRUGS (4)
  1. HUMIRA [Suspect]
     Indication: PSORIASIS
     Dosage: INITIAL LOADING DOSE
     Route: 058
     Dates: start: 20081224, end: 20081224
  2. HUMIRA [Suspect]
     Dosage: SECOMND MAINTENANCE DOSE
  3. HUMIRA [Suspect]
  4. RAPTIVA [Suspect]
     Indication: PSORIASIS
     Route: 065
     Dates: end: 20080101

REACTIONS (2)
  - PSORIASIS [None]
  - RASH [None]
